FAERS Safety Report 6965856 (Version 2)
Quarter: 2015Q1

REPORT INFORMATION
  Report Type: Spontaneous
  Country: GR (occurrence: None)
  Receive Date: 20090331
  Receipt Date: 20150218
  Transmission Date: 20150721
  Serious: Yes (Death)
  Sender: FDA-Public Use
  Company Number: 2009000823

PATIENT
  Age: 66 Year
  Sex: Male

DRUGS (6)
  1. TARCEVA [Suspect]
     Active Substance: ERLOTINIB HYDROCHLORIDE
     Indication: NON-SMALL CELL LUNG CANCER
     Dosage: (150 MG, QD FOR 12 DAYS, EVERY 21 DAYS), ORAL
     Route: 048
     Dates: start: 20090206, end: 20090206
  2. DOCETAXEL. [Suspect]
     Active Substance: DOCETAXEL
     Indication: NON-SMALL CELL LUNG CANCER
     Dosage: (160 MG, Q 21 DAYS), INTRAVENOUS
     Route: 042
     Dates: start: 20090130, end: 20090207
  3. OMEPRAZOLE. [Concomitant]
     Active Substance: OMEPRAZOLE
  4. LOSEC (OMEPRAZOLE) [Concomitant]
  5. BACTRIMEL (SULFAMETHOXAZOLE, TRIMETHOPRIM) [Concomitant]
  6. MEDROL [Concomitant]
     Active Substance: METHYLPREDNISOLONE

REACTIONS (2)
  - Dyspnoea [None]
  - Pulmonary embolism [None]

NARRATIVE: CASE EVENT DATE: 20090206
